FAERS Safety Report 15614331 (Version 7)
Quarter: 2020Q1

REPORT INFORMATION
  Report Type: Report from Study
  Country: US (occurrence: US)
  Receive Date: 20181113
  Receipt Date: 20200314
  Transmission Date: 20200409
  Serious: Yes (Hospitalization)
  Sender: FDA-Public Use
  Company Number: US-ACTELION-A-NJ2018-170716

PATIENT
  Age: 63 Year
  Sex: Female
  Weight: 105.21 kg

DRUGS (5)
  1. OPSUMIT [Suspect]
     Active Substance: MACITENTAN
     Indication: PULMONARY ARTERIAL HYPERTENSION
     Dosage: 10 MG, QD
     Route: 048
     Dates: start: 201803
  2. LASIX [Concomitant]
     Active Substance: FUROSEMIDE
     Dosage: 40 MG, TID
     Dates: start: 201306
  3. PERCOCET [Suspect]
     Active Substance: ACETAMINOPHEN\OXYCODONE HYDROCHLORIDE
     Indication: PRODUCT USED FOR UNKNOWN INDICATION
     Route: 065
  4. AMIODARONE [Concomitant]
     Active Substance: AMIODARONE
     Dosage: 200 MG, QD
     Dates: start: 201811
  5. SILDENAFIL CITRATE. [Concomitant]
     Active Substance: SILDENAFIL CITRATE
     Dosage: 20 MG, TID
     Dates: start: 2017

REACTIONS (22)
  - Dialysis [Unknown]
  - Dyspnoea [Unknown]
  - Fluid retention [Unknown]
  - Hypersensitivity [Unknown]
  - Cataract operation [Recovering/Resolving]
  - Renal failure [Unknown]
  - Syncope [Unknown]
  - Swelling face [Unknown]
  - Presyncope [Unknown]
  - Hallucination [Unknown]
  - Head injury [Unknown]
  - Sinusitis [Unknown]
  - Constipation [Unknown]
  - Surgery [Unknown]
  - Mitral valve repair [Unknown]
  - Aortic valve repair [Unknown]
  - Joint injury [Unknown]
  - Nasal congestion [Unknown]
  - Fall [Unknown]
  - Headache [Unknown]
  - Rehabilitation therapy [Unknown]
  - Eye infection bacterial [Unknown]

NARRATIVE: CASE EVENT DATE: 20180823
